FAERS Safety Report 19418966 (Version 1)
Quarter: 2021Q2

REPORT INFORMATION
  Report Type: Spontaneous
  Country: US (occurrence: US)
  Receive Date: 20210615
  Receipt Date: 20210615
  Transmission Date: 20210717
  Serious: Yes (Other)
  Sender: FDA-Public Use
  Company Number: US-PFIZER INC-2021650235

PATIENT
  Age: 63 Year
  Sex: Female

DRUGS (1)
  1. HEPARIN SODIUM. [Suspect]
     Active Substance: HEPARIN SODIUM
     Dosage: UNK
     Route: 042

REACTIONS (5)
  - Headache [Unknown]
  - Angina unstable [Recovered/Resolved]
  - Platelet aggregation abnormal [Unknown]
  - Paraesthesia [Unknown]
  - Heparin-induced thrombocytopenia [Unknown]
